FAERS Safety Report 9124196 (Version 2)
Quarter: 2013Q1

REPORT INFORMATION
  Report Type: Spontaneous
  Country: US (occurrence: US)
  Receive Date: 20130116
  Receipt Date: 20130305
  Transmission Date: 20140127
  Serious: No
  Sender: FDA-Public Use
  Company Number: US-PFIZER INC-2013013281

PATIENT
  Age: 68 Year
  Sex: Female
  Weight: 55.78 kg

DRUGS (5)
  1. TORISEL [Suspect]
     Indication: RENAL CANCER
     Dosage: 25 MG, WEEKLY
     Route: 042
     Dates: start: 20121017, end: 20130109
  2. CLEOCIN [Suspect]
     Indication: PRURITUS
     Dosage: UNK, 2X/DAY
     Dates: start: 201210
  3. BENADRYL [Suspect]
     Indication: PRURITUS
     Dosage: 12.5 MG, WEEKLY
     Route: 042
     Dates: start: 201210
  4. BENADRYL [Suspect]
     Indication: PRURITUS
     Dosage: 25 MG, EVERY 4 HRS
     Route: 048
     Dates: start: 201210
  5. HYDROXYZINE [Suspect]
     Indication: PRURITUS
     Dosage: 25 MG, EVERY SIX HOURS AS NEEDED
     Dates: start: 201210

REACTIONS (2)
  - Pruritus generalised [Unknown]
  - Drug ineffective [Unknown]
